FAERS Safety Report 26084877 (Version 1)
Quarter: 2025Q4

REPORT INFORMATION
  Report Type: Spontaneous
  Country: US (occurrence: US)
  Receive Date: 20251124
  Receipt Date: 20251124
  Transmission Date: 20260119
  Serious: No
  Sender: BEIGENE
  Company Number: US-BEONE MEDICINES-BGN-2025-019087

PATIENT
  Age: 52 Year

DRUGS (1)
  1. BRUKINSA [Suspect]
     Active Substance: ZANUBRUTINIB
     Indication: Product used for unknown indication
     Dosage: 160 MILLIGRAM, BID

REACTIONS (1)
  - Mental disorder [Unknown]
